FAERS Safety Report 9172991 (Version 1)
Quarter: 2013Q1

REPORT INFORMATION
  Report Type: Spontaneous
  Country: US (occurrence: None)
  Receive Date: 20130319
  Receipt Date: 20130319
  Transmission Date: 20140127
  Serious: Yes (Hospitalization)
  Sender: FDA-Public Use
  Company Number: None

PATIENT
  Age: 20 Year
  Sex: Female
  Weight: 61.24 kg

DRUGS (2)
  1. LAMOTRIGINE [Suspect]
     Indication: CONVULSION
     Dosage: 200 MG 1 DAILY/PM PO
     Route: 048
     Dates: start: 20130207, end: 20130222
  2. LAMOTRIGINE [Suspect]
     Indication: EPILEPSY
     Dosage: 200 MG 1 DAILY/PM PO
     Route: 048
     Dates: start: 20130207, end: 20130222

REACTIONS (4)
  - Convulsion [None]
  - Anxiety [None]
  - Hyperventilation [None]
  - Product substitution issue [None]
